FAERS Safety Report 21262921 (Version 1)
Quarter: 2022Q3

REPORT INFORMATION
  Report Type: Report from Study
  Country: US (occurrence: US)
  Receive Date: 20220828
  Receipt Date: 20220828
  Transmission Date: 20221027
  Serious: Yes (Death)
  Sender: FDA-Public Use
  Company Number: US-HLS-202201692

PATIENT
  Age: 50 Year

DRUGS (1)
  1. CLOZAPINE [Suspect]
     Active Substance: CLOZAPINE
     Indication: Product used for unknown indication
     Dosage: 200 MG
     Route: 065

REACTIONS (3)
  - Neutrophilia [Unknown]
  - Death [Fatal]
  - Antipsychotic drug level above therapeutic [Fatal]

NARRATIVE: CASE EVENT DATE: 20220510
